FAERS Safety Report 9311069 (Version 1)
Quarter: 2013Q2

REPORT INFORMATION
  Report Type: Spontaneous
  Country: US (occurrence: US)
  Receive Date: 20130528
  Receipt Date: 20130528
  Transmission Date: 20140414
  Serious: No
  Sender: FDA-Public Use
  Company Number: US-PFIZER INC-2013159968

PATIENT
  Age: 71 Year
  Sex: Male

DRUGS (1)
  1. INLYTA [Suspect]
     Indication: RENAL NEOPLASM
     Dosage: 4 MG, 2X/DAY (REPORTED AS: FOUR 1MG TAB, BID)
     Route: 048
     Dates: start: 20120327, end: 20130403

REACTIONS (2)
  - Disease progression [Unknown]
  - Renal neoplasm [Unknown]
